FAERS Safety Report 5873092-0 (Version None)
Quarter: 2008Q3

REPORT INFORMATION
  Report Type: 
  Country: None (occurrence: None)
  Receive Date: 20080902
  Receipt Date: 20080818
  Transmission Date: 20090109
  Serious: Yes (Other)
  Sender: FDA-Public Use
  Company Number: US024400

PATIENT
  Sex: Female

DRUGS (3)
  1. FENTANYL [Suspect]
     Indication: PREMEDICATION
     Dosage: BUCCAL
     Route: 002
     Dates: start: 20080722
  2. XYLOCAINE [Suspect]
     Indication: PREMEDICATION
     Dates: start: 20080722, end: 20080722
  3. XYLOCAINE [Suspect]
     Indication: PREMEDICATION
     Dates: start: 20080722, end: 20080722

REACTIONS (8)
  - BLOOD PRESSURE DECREASED [None]
  - DELUSION [None]
  - HYPERHIDROSIS [None]
  - HYPERVENTILATION [None]
  - OXYGEN SATURATION DECREASED [None]
  - PANIC ATTACK [None]
  - PROCEDURAL COMPLICATION [None]
  - TACHYCARDIA [None]
